FAERS Safety Report 24981742 (Version 2)
Quarter: 2025Q3

REPORT INFORMATION
  Report Type: Report from Study
  Country: GB (occurrence: GB)
  Receive Date: 20250218
  Receipt Date: 20250731
  Transmission Date: 20251020
  Serious: Yes (Hospitalization, Other)
  Sender: JOHNSON AND JOHNSON
  Company Number: GB-JNJFOC-20250234270

PATIENT
  Age: 73 Year
  Sex: Female
  Weight: 61.4 kg

DRUGS (18)
  1. DARATUMUMAB\HYALURONIDASE-FIHJ [Suspect]
     Active Substance: DARATUMUMAB\HYALURONIDASE-FIHJ
     Indication: Plasma cell myeloma
     Route: 058
     Dates: start: 20241126
  2. DARATUMUMAB\HYALURONIDASE-FIHJ [Suspect]
     Active Substance: DARATUMUMAB\HYALURONIDASE-FIHJ
     Route: 058
     Dates: start: 20241203
  3. DARATUMUMAB\HYALURONIDASE-FIHJ [Suspect]
     Active Substance: DARATUMUMAB\HYALURONIDASE-FIHJ
     Route: 058
     Dates: start: 20241119
  4. DARATUMUMAB\HYALURONIDASE-FIHJ [Suspect]
     Active Substance: DARATUMUMAB\HYALURONIDASE-FIHJ
     Route: 058
     Dates: start: 20241203, end: 20241203
  5. LENALIDOMIDE [Suspect]
     Active Substance: LENALIDOMIDE
     Indication: Plasma cell myeloma
     Route: 065
  6. ACYCLOVIR [Concomitant]
     Active Substance: ACYCLOVIR
     Indication: Herpes simplex
     Dates: start: 20241119
  7. CO-TRIMOXAZOLE AKRI [Concomitant]
     Indication: Prophylaxis
     Dates: start: 20241119
  8. ALLOPURINOL [Concomitant]
     Active Substance: ALLOPURINOL
     Indication: Prophylaxis
     Dates: start: 20241119
  9. LANSOPRAZOLE DCI [Concomitant]
     Indication: Prophylaxis
     Dates: start: 20241119
  10. APIXABAN 2.5 ZYDUS [Concomitant]
     Indication: Prophylaxis
     Dates: start: 20241119, end: 20241209
  11. APIXABAN 2.5 ZYDUS [Concomitant]
     Dates: start: 20241209, end: 20241214
  12. ENTECAVIR BETA [Concomitant]
     Indication: Antiviral prophylaxis
     Route: 048
     Dates: start: 20241119
  13. FILGRASTIM AAFI [Concomitant]
     Indication: Neutrophil count decreased
     Dates: start: 20241210, end: 20241211
  14. LEVOMEPROMAZINE CHLORIDE [Concomitant]
     Indication: Nausea
     Dates: start: 20241212, end: 20241212
  15. BETAMETHASONE VALERATE [Concomitant]
     Active Substance: BETAMETHASONE VALERATE
     Indication: Erythema multiforme
     Dates: start: 20241213, end: 20241214
  16. BETAMETHASONE VALERATE [Concomitant]
     Active Substance: BETAMETHASONE VALERATE
     Dates: start: 20241209, end: 20241213
  17. AMLODIPINE MALEATE [Concomitant]
     Active Substance: AMLODIPINE MALEATE
     Indication: Product used for unknown indication
  18. ATORVASTATIN AAA [Concomitant]
     Indication: Product used for unknown indication

REACTIONS (10)
  - Erythema multiforme [Recovered/Resolved]
  - Diarrhoea [Recovered/Resolved]
  - Hypokalaemia [Recovered/Resolved]
  - Constipation [Recovered/Resolved]
  - Hypotension [Recovered/Resolved]
  - Rash maculo-papular [Recovered/Resolved]
  - Vomiting [Recovered/Resolved]
  - Nausea [Recovered/Resolved]
  - Pyrexia [Recovered/Resolved]
  - Neutrophil count decreased [Recovered/Resolved]

NARRATIVE: CASE EVENT DATE: 20241124
